FAERS Safety Report 24316310 (Version 1)
Quarter: 2024Q3

REPORT INFORMATION
  Report Type: Spontaneous
  Country: CZ (occurrence: CZ)
  Receive Date: 20240913
  Receipt Date: 20240913
  Transmission Date: 20241016
  Serious: Yes (Life-Threatening, Hospitalization, Other)
  Sender: CHEPLAPHARM
  Company Number: None

PATIENT
  Age: 34 Year
  Sex: Male
  Weight: 102 kg

DRUGS (5)
  1. OLANZAPINE PAMOATE [Suspect]
     Active Substance: OLANZAPINE PAMOATE
     Indication: Obsessive-compulsive disorder
     Dosage: THE APPLICATION WAS ON 23.8.2024 AT 19:40. THE MEDICATION WAS ADMINISTERED 25 DAYS APART, THE LAS...
     Route: 030
     Dates: start: 20230710
  2. OLANZAPINE PAMOATE [Suspect]
     Active Substance: OLANZAPINE PAMOATE
     Indication: Obsessive-compulsive disorder
     Route: 030
     Dates: start: 20240728
  3. OLANZAPINE PAMOATE [Suspect]
     Active Substance: OLANZAPINE PAMOATE
     Indication: Obsessive-compulsive disorder
     Dosage: THE APPLICATION WAS ON 23.8.2024 AT 19:40. THE MEDICATION WAS ADMINISTERED 25 DAYS APART, THE LAS...
     Route: 030
     Dates: start: 20240823
  4. KVENTIAX PROLONG [Concomitant]
     Indication: Obsessive-compulsive disorder
     Dosage: THE PRESCRIPTION WAS 1 DOSE IN THE MORNING + 1 DOSE IN THE EVENING.?DAILY DOSE: 100 MILLIGRAM
     Route: 048
     Dates: start: 20240307, end: 20240823
  5. LYRICA [Concomitant]
     Active Substance: PREGABALIN
     Indication: Neuralgia
     Dosage: LONG TERM PRESCRIOTION. THE PRESCRIPTION WAS: 1 DOSE IN THE MORNING AROUN 08:00 AND 1 DOSE IN THE...
     Route: 048
     Dates: start: 20240616, end: 20240823

REACTIONS (5)
  - Vertigo [Recovered/Resolved]
  - Asthenia [Recovered/Resolved]
  - Altered state of consciousness [Recovered/Resolved]
  - Agitation [Recovered/Resolved]
  - Product use in unapproved indication [Recovered/Resolved]

NARRATIVE: CASE EVENT DATE: 20230710
